FAERS Safety Report 25508546 (Version 1)
Quarter: 2025Q3

REPORT INFORMATION
  Report Type: Spontaneous
  Country: GB (occurrence: GB)
  Receive Date: 20250703
  Receipt Date: 20250703
  Transmission Date: 20251021
  Serious: Yes (Other)
  Sender: TEVA
  Company Number: GB-MHRA-TPP7934548C11136413YC1750854947260

PATIENT
  Age: 37 Year
  Sex: Male
  Weight: 123 kg

DRUGS (3)
  1. FLUTICASONE [Suspect]
     Active Substance: FLUTICASONE
     Indication: Ill-defined disorder
     Dosage: ONE SPRAY TWICE DAILY,  FLUTICASONE PROPIONATE, 2 DOSAGE FORMS DAILY, DOSE FORM : SPRAY
     Route: 065
     Dates: start: 20250609
  2. FEXOFENADINE [Concomitant]
     Active Substance: FEXOFENADINE HYDROCHLORIDE
     Indication: Ill-defined disorder
     Dosage: TAKE ONE DAILY
     Dates: start: 20250612
  3. LANSOPRAZOLE [Concomitant]
     Active Substance: LANSOPRAZOLE
     Indication: Ill-defined disorder
     Dosage: TAKE ONE TWICE A DAY, 2 DOSAGE FORMS DAILY
     Dates: start: 20241003

REACTIONS (1)
  - Swelling [Recovered/Resolved]
